FAERS Safety Report 4375693-8 (Version None)
Quarter: 2004Q2

REPORT INFORMATION
  Report Type: 
  Country: None (occurrence: None)
  Receive Date: 20040607
  Receipt Date: 20040524
  Transmission Date: 20050107
  Serious: Yes (Hospitalization, Other)
  Sender: FDA-Public Use
  Company Number: 2004034700

PATIENT
  Age: 34 Year
  Sex: Male

DRUGS (28)
  1. VIRACEPT [Suspect]
     Indication: HIV INFECTION
     Dates: start: 19950101
  2. NEURONTIN [Suspect]
     Indication: CONVULSION
     Dates: start: 20020101, end: 20020201
  3. DOXORUBICIN HYDROCHLORIDE [Suspect]
     Indication: KAPOSI'S SARCOMA
     Dosage: 35 MG (35 MG MG) INTRAVENOUS
     Route: 042
     Dates: start: 20020101
  4. TENOFOVIR DISOPROXIL FUMARATE (TENOFOVIR DISOPROXIL FUMARATE) [Suspect]
     Indication: HIV INFECTION
     Dosage: 245 MG, ORAL
     Route: 048
     Dates: start: 20031119
  5. KALETRA [Suspect]
     Indication: HIV INFECTION
     Dosage: (2 IN D), ORAL
     Route: 048
     Dates: start: 20020101
  6. DOMPERIDONE (DOMPERIDONE) [Suspect]
     Indication: ILL-DEFINED DISORDER
     Dosage: ORAL
     Route: 048
     Dates: start: 20031118
  7. ZIDOVUDINE [Concomitant]
  8. ZALCITABINE (ZALCITABINE) [Concomitant]
  9. STAVUDINE (STAVUDINE) [Concomitant]
  10. LAMIVUDINE (LAMIVUDINE) [Concomitant]
  11. INDINAVIR (INDINAVIR) [Concomitant]
  12. RITONAVIR (RITONAVIR) [Concomitant]
  13. EFAVIRENZ (EFAVIRENZ) [Concomitant]
  14. DIDANOSINE (DIDANOSINE) [Concomitant]
  15. BOSENTAN (BOSENTAN) [Concomitant]
  16. .......... [Concomitant]
  17. PYRIMETHAMINE TAB [Concomitant]
  18. SULFADIAZINE [Concomitant]
  19. CALCIUM FOLINIATE (CALCIUM FOLINATE) [Concomitant]
  20. PENTAMIDINE (PENTAMIDINE) [Concomitant]
  21. CLINDAMYCIN HCL [Concomitant]
  22. VITAMINS (VITAMINS) [Concomitant]
  23. LEVOCARNITINE (LEVOCARNITINE) [Concomitant]
  24. FUROSEMIDE [Concomitant]
  25. POTASSIUM CHLORIDE [Concomitant]
  26. BLEOMYCIN [Concomitant]
  27. ABACAVIR SULFATE (ABACAVIR SULFATE) [Concomitant]
  28. ONDANSETRON HCL [Concomitant]

REACTIONS (21)
  - ABDOMINAL PAIN [None]
  - CEREBRAL TOXOPLASMOSIS [None]
  - CONVULSION [None]
  - DRUG INTERACTION [None]
  - DRUG INTOLERANCE [None]
  - DYSAESTHESIA [None]
  - DYSPNOEA [None]
  - FOLATE DEFICIENCY [None]
  - HEPATIC FUNCTION ABNORMAL [None]
  - HEPATOCELLULAR DAMAGE [None]
  - HYPERAESTHESIA [None]
  - HYPERLACTACIDAEMIA [None]
  - KAPOSI'S SARCOMA [None]
  - LIVER DISORDER [None]
  - NEURALGIA [None]
  - OEDEMA [None]
  - PANCREATIC DISORDER [None]
  - PANCYTOPENIA [None]
  - PULMONARY HYPERTENSION [None]
  - RASH [None]
  - RENAL FAILURE CHRONIC [None]
